FAERS Safety Report 8049999-5 (Version None)
Quarter: 2012Q1

REPORT INFORMATION
  Report Type: 
  Country: None (occurrence: None)
  Receive Date: 20120117
  Receipt Date: 20120116
  Transmission Date: 20120608
  Serious: Yes (Other)
  Sender: FDA-Public Use
  Company Number: US-PFIZER INC-2012012314

PATIENT
  Sex: Female
  Weight: 80.726 kg

DRUGS (3)
  1. ZOLOFT [Concomitant]
     Dosage: UNK
  2. CHANTIX [Suspect]
     Indication: SMOKING CESSATION THERAPY
     Dosage: 0.5 MG, 1X/DAY
     Route: 048
     Dates: start: 20111212
  3. CHANTIX [Suspect]
     Dosage: UNK
     Route: 048
     Dates: end: 20111223

REACTIONS (3)
  - FEELING ABNORMAL [None]
  - DEPRESSED MOOD [None]
  - ABNORMAL BEHAVIOUR [None]
